FAERS Safety Report 23951743 (Version 2)
Quarter: 2024Q2

REPORT INFORMATION
  Report Type: Spontaneous
  Country: ES (occurrence: None)
  Receive Date: 20240607
  Receipt Date: 20240612
  Transmission Date: 20240715
  Serious: Yes (Other)
  Sender: FDA-Public Use
  Company Number: ES-ROCHE-3575722

PATIENT
  Age: 72 Year
  Sex: Male

DRUGS (6)
  1. ATEZOLIZUMAB [Suspect]
     Active Substance: ATEZOLIZUMAB
     Indication: Hepatic cancer
     Dosage: 7 CYCLES RECEIVED
     Route: 065
     Dates: start: 20240115
  2. BEVACIZUMAB [Suspect]
     Active Substance: BEVACIZUMAB
     Indication: Hepatic cancer
     Dosage: 7 CYCLES RECEIVED
     Route: 065
     Dates: start: 20240115
  3. AMLODIPINE\VALSARTAN [Concomitant]
     Active Substance: AMLODIPINE\VALSARTAN
  4. DAPAGLIFLOZIN PROPANEDIOL\METFORMIN HYDROCHLORIDE [Concomitant]
     Active Substance: DAPAGLIFLOZIN PROPANEDIOL\METFORMIN HYDROCHLORIDE
  5. REPAGLINIDE [Concomitant]
     Active Substance: REPAGLINIDE
  6. ROSUVASTATIN [Concomitant]
     Active Substance: ROSUVASTATIN

REACTIONS (1)
  - Retinal detachment [Unknown]

NARRATIVE: CASE EVENT DATE: 20240529
